FAERS Safety Report 18604439 (Version 1)
Quarter: 2020Q4

REPORT INFORMATION
  Report Type: Spontaneous
  Country: US (occurrence: US)
  Receive Date: 20201211
  Receipt Date: 20201211
  Transmission Date: 20210114
  Serious: Yes (Death, Hospitalization)
  Sender: FDA-Public Use
  Company Number: None

PATIENT
  Age: 54 Year
  Sex: Male
  Weight: 84.1 kg

DRUGS (5)
  1. GEMCITABINE HYDROCHLORIDE. [Suspect]
     Active Substance: GEMCITABINE HYDROCHLORIDE
     Dates: end: 20201110
  2. HYDROCODONE-ACETAMINOPHEN [Concomitant]
     Active Substance: ACETAMINOPHEN\HYDROCODONE
  3. TRAMADOL. [Concomitant]
     Active Substance: TRAMADOL
  4. CISPLATIN. [Suspect]
     Active Substance: CISPLATIN
     Dates: end: 20200410
  5. ATORVASTATIN [Concomitant]
     Active Substance: ATORVASTATIN

REACTIONS (13)
  - Malignant neoplasm progression [None]
  - Malnutrition [None]
  - Generalised oedema [None]
  - Cardiomyopathy [None]
  - Acute kidney injury [None]
  - Hyponatraemia [None]
  - SARS-CoV-2 test positive [None]
  - Hypophagia [None]
  - Metabolic encephalopathy [None]
  - Tumour pain [None]
  - Somnolence [None]
  - Loss of personal independence in daily activities [None]
  - Confusional state [None]

NARRATIVE: CASE EVENT DATE: 20201205
